FAERS Safety Report 10576332 (Version 3)
Quarter: 2015Q2

REPORT INFORMATION
  Report Type: Spontaneous
  Country: US (occurrence: US)
  Receive Date: 20141111
  Receipt Date: 20150406
  Transmission Date: 20150821
  Serious: Yes (Hospitalization, Other)
  Sender: FDA-Public Use
  Company Number: US-SA-2014SA153437

PATIENT
  Age: 35 Year
  Sex: Male
  Weight: 66 kg

DRUGS (9)
  1. AMBIEN [Suspect]
     Active Substance: ZOLPIDEM TARTRATE
     Indication: INSOMNIA
     Route: 048
     Dates: start: 20140620, end: 20140623
  2. AMBIEN [Suspect]
     Active Substance: ZOLPIDEM TARTRATE
     Indication: INSOMNIA
     Route: 048
     Dates: start: 20140620, end: 20140623
  3. ZOLOFT [Suspect]
     Active Substance: SERTRALINE HYDROCHLORIDE
     Indication: GENERALISED ANXIETY DISORDER
     Route: 048
     Dates: start: 20140522, end: 20140528
  4. ZOLOFT [Suspect]
     Active Substance: SERTRALINE HYDROCHLORIDE
     Indication: INSOMNIA
     Route: 048
     Dates: start: 20140522, end: 20140528
  5. PANTHENOL/RETINOL/THIAMINE HYDROCHLORIDE/ASCORBIC ACID/ERGOCALCIFEROL/FOLIC ACID/RIBOFLAVIN/NICOTINA [Concomitant]
  6. CELEXA [Suspect]
     Active Substance: CITALOPRAM HYDROBROMIDE
     Indication: INSOMNIA
     Route: 048
     Dates: start: 20140528
  7. LEXAPRO [Suspect]
     Active Substance: ESCITALOPRAM OXALATE
     Indication: INSOMNIA
     Route: 065
     Dates: start: 20140621, end: 20140622
  8. CELEXA [Suspect]
     Active Substance: CITALOPRAM HYDROBROMIDE
     Indication: GENERALISED ANXIETY DISORDER
     Route: 048
     Dates: start: 20140528
  9. LEXAPRO [Suspect]
     Active Substance: ESCITALOPRAM OXALATE
     Indication: INSOMNIA
     Route: 065
     Dates: start: 20140616, end: 20140621

REACTIONS (29)
  - Crying [Not Recovered/Not Resolved]
  - Decreased appetite [Not Recovered/Not Resolved]
  - Weight decreased [Recovered/Resolved]
  - Agitation [Recovered/Resolved]
  - Fear [Recovered/Resolved]
  - Haematemesis [Recovered/Resolved]
  - Vomiting [Recovered/Resolved]
  - Insomnia [Recovered/Resolved]
  - Mental impairment [Recovered/Resolved]
  - Mania [Recovered/Resolved]
  - Tremor [Recovered/Resolved]
  - Feeding disorder [Unknown]
  - Suicidal ideation [Recovered/Resolved]
  - Palpitations [Recovered/Resolved]
  - Nausea [Unknown]
  - Feeling of despair [Recovered/Resolved]
  - Headache [Recovered/Resolved]
  - Hallucination [Unknown]
  - Major depression [Not Recovered/Not Resolved]
  - Lethargy [Recovered/Resolved]
  - Apathy [Not Recovered/Not Resolved]
  - Depressed mood [Recovered/Resolved]
  - Impaired work ability [Unknown]
  - Paranoia [Recovering/Resolving]
  - Palpitations [Recovered/Resolved]
  - Anhedonia [Recovering/Resolving]
  - Daydreaming [Recovered/Resolved]
  - Anxiety [Recovered/Resolved]
  - Disturbance in attention [Recovered/Resolved]

NARRATIVE: CASE EVENT DATE: 201405
